FAERS Safety Report 10643868 (Version 2)
Quarter: 2015Q1

REPORT INFORMATION
  Report Type: Spontaneous
  Country: US (occurrence: US)
  Receive Date: 20141210
  Receipt Date: 20150126
  Transmission Date: 20150720
  Serious: Yes (Other)
  Sender: FDA-Public Use
  Company Number: US-PFIZER INC-2014334324

PATIENT
  Age: 72 Year
  Sex: Male
  Weight: 97.96 kg

DRUGS (12)
  1. LYRICA [Suspect]
     Active Substance: PREGABALIN
     Indication: PARAESTHESIA
     Dosage: 100 MG, 3X/DAY
     Route: 048
  2. LIORESAL [Suspect]
     Active Substance: BACLOFEN
     Indication: MUSCLE SPASMS
     Dosage: 10 MG, 2X/DAY
     Route: 048
     Dates: start: 20130331
  3. MICROZIDE [Concomitant]
     Active Substance: HYDROCHLOROTHIAZIDE
     Dosage: 25 MG, 1X/DAY
     Route: 048
  4. LYRICA [Suspect]
     Active Substance: PREGABALIN
     Indication: HYPOAESTHESIA
  5. FLOMAX [Concomitant]
     Active Substance: TAMSULOSIN HYDROCHLORIDE
     Dosage: 0.4 MG DAILY
     Route: 048
  6. MICROZIDE [Concomitant]
     Active Substance: HYDROCHLOROTHIAZIDE
     Dosage: 12.5 MG, 1X/DAY
     Route: 048
  7. NORVASC [Concomitant]
     Active Substance: AMLODIPINE BESYLATE
     Dosage: 10 MG, DAILY
     Route: 048
  8. CARDURA [Concomitant]
     Active Substance: DOXAZOSIN MESYLATE
     Dosage: 2 MG, NIGHTLY
     Route: 048
  9. ENALAPRIL/HYDROCHLOROTHIAZIDE [Concomitant]
     Active Substance: ENALAPRIL MALEATE\HYDROCHLOROTHIAZIDE
     Dosage: 1 TABLET ONCE DAILY, (ENALAPRIL MALEATE 5 MG/HYDROCHLOROTHIAZIDE 12.5 MG)
     Route: 048
  10. COLACE [Concomitant]
     Active Substance: DOCUSATE SODIUM
     Dosage: 100 MG, NIGHTLY
     Route: 048
  11. TOPROL XL [Concomitant]
     Active Substance: METOPROLOL SUCCINATE
     Dosage: 25 MG, 1X/DAY
     Route: 048
  12. PAMELOR [Concomitant]
     Active Substance: NORTRIPTYLINE HYDROCHLORIDE
     Dosage: 25 MG, NIGHTLY
     Route: 048

REACTIONS (23)
  - Arthropathy [Unknown]
  - Back pain [Unknown]
  - Oedema peripheral [Not Recovered/Not Resolved]
  - Muscular weakness [Unknown]
  - Gait disturbance [Recovering/Resolving]
  - Nocturia [Recovering/Resolving]
  - Fatigue [Unknown]
  - Dysstasia [Unknown]
  - Drug ineffective [Unknown]
  - Sleep disorder [Unknown]
  - Dysphoria [Unknown]
  - Myalgia [Unknown]
  - Pain in extremity [Unknown]
  - Asthenia [Unknown]
  - Body mass index increased [Unknown]
  - Lumbar spinal stenosis [Unknown]
  - Activities of daily living impaired [Unknown]
  - Pollakiuria [Unknown]
  - Myelitis transverse [Not Recovered/Not Resolved]
  - Intervertebral disc degeneration [Unknown]
  - Muscle spasms [Unknown]
  - Coordination abnormal [Unknown]
  - Muscle tone disorder [Unknown]

NARRATIVE: CASE EVENT DATE: 20130131
